FAERS Safety Report 8625775-7 (Version None)
Quarter: 2012Q3

REPORT INFORMATION
  Report Type: 
  Country: None (occurrence: None)
  Receive Date: 20120827
  Receipt Date: 20120823
  Transmission Date: 20120928
  Serious: Yes (Hospitalization)
  Sender: FDA-Public Use
  Company Number: US-ROCHE-1106972

PATIENT
  Sex: Female

DRUGS (2)
  1. RIBAVIRIN [Suspect]
     Indication: HEPATITIS C
     Dates: start: 20071115, end: 20081001
  2. PEGASYS [Suspect]
     Indication: HEPATITIS C
     Dates: start: 20071115, end: 20081001

REACTIONS (1)
  - CARDIAC FAILURE CONGESTIVE [None]
